FAERS Safety Report 10956037 (Version 3)
Quarter: 2015Q2

REPORT INFORMATION
  Report Type: Spontaneous
  Country: US (occurrence: None)
  Receive Date: 20150324
  Receipt Date: 20150410
  Transmission Date: 20150821
  Serious: Yes (Hospitalization, Other)
  Sender: FDA-Public Use
  Company Number: ADR-2015-00568

PATIENT
  Age: 60 Year
  Sex: Female

DRUGS (1)
  1. LIORESAL [Suspect]
     Active Substance: BACLOFEN
     Indication: MUSCLE SPASTICITY

REACTIONS (14)
  - Therapeutic response decreased [None]
  - Post procedural complication [None]
  - Bradycardia [None]
  - Device connection issue [None]
  - Device failure [None]
  - Dyspnoea [None]
  - Overdose [None]
  - Device breakage [None]
  - Musculoskeletal disorder [None]
  - Drug hypersensitivity [None]
  - Drug intolerance [None]
  - Hypotension [None]
  - Movement disorder [None]
  - Incorrect dose administered [None]
